FAERS Safety Report 20781669 (Version 6)
Quarter: 2024Q2

REPORT INFORMATION
  Report Type: Other
  Country: IN (occurrence: None)
  Receive Date: 20220504
  Receipt Date: 20240422
  Transmission Date: 20240716
  Serious: Yes (Other)
  Sender: FDA-Public Use
  Company Number: IN-ROCHE-2787478

PATIENT
  Age: 39 Year
  Sex: Female

DRUGS (3)
  1. PERJETA [Suspect]
     Active Substance: PERTUZUMAB
     Indication: Breast cancer metastatic
     Route: 042
     Dates: start: 20200103
  2. PHESGO [Suspect]
     Active Substance: HYALURONIDASE-ZZXF\PERTUZUMAB\TRASTUZUMAB
     Indication: Breast cancer metastatic
     Dosage: INTERVAL 20 DAYS
     Route: 042
     Dates: start: 20221021
  3. PHESGO [Suspect]
     Active Substance: HYALURONIDASE-ZZXF\PERTUZUMAB\TRASTUZUMAB
     Route: 058
     Dates: start: 20221021

REACTIONS (8)
  - Balance disorder [Unknown]
  - Gait disturbance [Unknown]
  - Metastases to central nervous system [Unknown]
  - Viral infection [Unknown]
  - Pyrexia [Unknown]
  - Nasopharyngitis [Unknown]
  - Cough [Unknown]
  - Off label use [Unknown]
